FAERS Safety Report 15272286 (Version 2)
Quarter: 2018Q3

REPORT INFORMATION
  Report Type: Spontaneous
  Country: US (occurrence: US)
  Receive Date: 20180813
  Receipt Date: 20180822
  Transmission Date: 20181010
  Serious: Yes (Hospitalization, Other)
  Sender: FDA-Public Use
  Company Number: US-GLAXOSMITHKLINE-US2018143078

PATIENT
  Age: 53 Year
  Sex: Female

DRUGS (1)
  1. VENTOLIN HFA [Suspect]
     Active Substance: ALBUTEROL SULFATE
     Indication: PRODUCT USED FOR UNKNOWN INDICATION
     Dosage: UNK
     Route: 055
     Dates: start: 1998

REACTIONS (15)
  - Neuropathy peripheral [Unknown]
  - Blister [Recovering/Resolving]
  - Carpal tunnel syndrome [Unknown]
  - Pyrexia [Recovered/Resolved]
  - Expired product administered [Recovered/Resolved]
  - Diabetic coma [Unknown]
  - Wheelchair user [Unknown]
  - Dyspnoea [Recovered/Resolved]
  - Road traffic accident [Unknown]
  - Amnesia [Not Recovered/Not Resolved]
  - Malaise [Recovering/Resolving]
  - Drug dose omission [Recovered/Resolved]
  - Wheezing [Recovered/Resolved]
  - Medical induction of coma [Unknown]
  - Arthropod bite [Unknown]

NARRATIVE: CASE EVENT DATE: 201808
